FAERS Safety Report 20919223 (Version 1)
Quarter: 2022Q2

REPORT INFORMATION
  Report Type: Spontaneous
  Country: US (occurrence: US)
  Receive Date: 20220606
  Receipt Date: 20220606
  Transmission Date: 20220721
  Serious: Yes (Death, Other)
  Sender: FDA-Public Use
  Company Number: US-PFIZER INC-202200751357

PATIENT
  Age: 28 Year
  Sex: Male

DRUGS (8)
  1. KETAMINE HYDROCHLORIDE [Suspect]
     Active Substance: KETAMINE HYDROCHLORIDE
     Indication: Depression
     Dosage: UNK
     Route: 042
  2. ARMODAFINIL [Concomitant]
     Active Substance: ARMODAFINIL
     Dosage: 250 MG, DAILY
  3. CLONAZEPAM [Concomitant]
     Active Substance: CLONAZEPAM
     Indication: Anxiety
     Dosage: 1 MG, DAILY(AS NEEDED)
  4. DEXMETHYLPHENIDATE [Concomitant]
     Active Substance: DEXMETHYLPHENIDATE
     Dosage: 10 MG, DAILY
  5. QUETIAPINE [Concomitant]
     Active Substance: QUETIAPINE
     Dosage: 100MG NIGHTLY
  6. TESTOSTERONE [Concomitant]
     Active Substance: TESTOSTERONE
     Dosage: 20.25 MG/1.25 GR (1.62%) TRANSDERMAL GEL PUMP (3 PUMPS PER DAY)
     Route: 062
  7. METFORMIN [Concomitant]
     Active Substance: METFORMIN HYDROCHLORIDE
     Dosage: 500 MG, DAILY
  8. LEVOTHYROXINE [Concomitant]
     Active Substance: LEVOTHYROXINE
     Dosage: 75 UG, DAILY

REACTIONS (2)
  - Completed suicide [Fatal]
  - Off label use [Unknown]
